FAERS Safety Report 4326394-3 (Version None)
Quarter: 2004Q1

REPORT INFORMATION
  Report Type: 
  Country: None (occurrence: None)
  Receive Date: 20040330
  Receipt Date: 20040322
  Transmission Date: 20041129
  Serious: Yes (Hospitalization)
  Sender: FDA-Public Use
  Company Number: PHFR2004GB01528

PATIENT
  Age: 39 Year
  Sex: Female

DRUGS (9)
  1. CARBAMAZEPINE [Suspect]
     Indication: EPILEPSY
     Dosage: 600 MG, BID
     Route: 048
     Dates: start: 19990101
  2. BENDROFLUAZIDE [Suspect]
     Dosage: 2.5 MG, QD
     Route: 048
     Dates: end: 20040205
  3. EPILIM CHRONO [Concomitant]
     Indication: EPILEPSY
     Dosage: 1000 MG, BID
     Route: 048
  4. RISPERIDONE [Concomitant]
     Indication: SCHIZOPHRENIA
     Dosage: 2 MG, QD
     Route: 048
     Dates: start: 20030501
  5. CLOMIPRAMINE HCL [Concomitant]
     Indication: BIPOLAR DISORDER
     Dosage: 150MG/DAY
     Route: 048
  6. DIAZEPAM [Concomitant]
     Indication: PANIC REACTION
     Dosage: 5 MG, TID
     Route: 065
     Dates: start: 20031001
  7. PULMICORT [Concomitant]
     Indication: ASTHMA
     Dosage: 100 UG, BID
  8. BRICANYL [Concomitant]
     Indication: ASTHMA
  9. FLUPENTIXOL [Concomitant]
     Dosage: 100 MG, BIW
     Route: 030

REACTIONS (6)
  - BLOOD POTASSIUM DECREASED [None]
  - BLOOD SODIUM DECREASED [None]
  - MUTISM [None]
  - MYOCLONIC EPILEPSY [None]
  - MYOCLONUS [None]
  - STARING [None]
